FAERS Safety Report 4900972-2 (Version None)
Quarter: 2006Q1

REPORT INFORMATION
  Report Type: 
  Country: None (occurrence: None)
  Receive Date: 20060201
  Receipt Date: 20060113
  Transmission Date: 20060701
  Serious: Yes (Hospitalization)
  Sender: FDA-Public Use
  Company Number: JP200511000115

PATIENT
  Age: 69 Year
  Sex: Female
  Weight: 50 kg

DRUGS (10)
  1. HUMALOG [Suspect]
     Indication: DIABETES MELLITUS
     Dosage: SUBCUTANEOUS; SEE IMAGE
     Route: 058
     Dates: end: 20030407
  2. HUMALOG [Suspect]
     Indication: DIABETES MELLITUS
     Dosage: SUBCUTANEOUS; SEE IMAGE
     Route: 058
     Dates: start: 20030408, end: 20040531
  3. HUMALOG [Suspect]
     Indication: DIABETES MELLITUS
     Dosage: SUBCUTANEOUS; SEE IMAGE
     Route: 058
     Dates: start: 20030408, end: 20040531
  4. HUMALOG [Suspect]
     Indication: DIABETES MELLITUS
     Dosage: SUBCUTANEOUS; SEE IMAGE
     Route: 058
     Dates: start: 20030408, end: 20040531
  5. HUMALOG [Suspect]
     Indication: DIABETES MELLITUS
     Dosage: SUBCUTANEOUS; SEE IMAGE
     Route: 058
     Dates: start: 20040601, end: 20051014
  6. HUMALOG [Suspect]
     Indication: DIABETES MELLITUS
     Dosage: SUBCUTANEOUS; SEE IMAGE
     Route: 058
     Dates: start: 20040601, end: 20051014
  7. HUMALOG [Suspect]
     Indication: DIABETES MELLITUS
     Dosage: SUBCUTANEOUS; SEE IMAGE
     Route: 058
     Dates: start: 20040601, end: 20051014
  8. HUMACART NPH (HUMAN INSULIN (RDNA ORIGIN) NPH) CARTRIDGE [Suspect]
     Indication: DIABETES MELLITUS INSULIN-DEPENDENT
     Dosage: SUBCUTANEOUS; SEE IMAGE
     Route: 058
     Dates: end: 20030407
  9. HUMACART NPH (HUMAN INSULIN (RDNA ORIGIN) NPH) CARTRIDGE [Suspect]
     Indication: DIABETES MELLITUS INSULIN-DEPENDENT
     Dosage: SUBCUTANEOUS; SEE IMAGE
     Route: 058
     Dates: start: 20030408, end: 20040531
  10. HUMACART NPH (HUMAN INSULIN (RDNA ORIGIN) NPH) CARTRIDGE [Suspect]
     Indication: DIABETES MELLITUS INSULIN-DEPENDENT
     Dosage: SUBCUTANEOUS; SEE IMAGE
     Route: 058
     Dates: start: 20040601, end: 20051013

REACTIONS (7)
  - ANTI-INSULIN ANTIBODY POSITIVE [None]
  - BLOOD GLUCOSE INCREASED [None]
  - BLOOD POTASSIUM INCREASED [None]
  - BLOOD SODIUM DECREASED [None]
  - DEPRESSED LEVEL OF CONSCIOUSNESS [None]
  - KETOACIDOSIS [None]
  - VOMITING [None]
